FAERS Safety Report 7480999-X (Version None)
Quarter: 2011Q2

REPORT INFORMATION
  Report Type: 
  Country: None (occurrence: None)
  Receive Date: 20110516
  Receipt Date: 20110510
  Transmission Date: 20111010
  Serious: Yes (Hospitalization)
  Sender: FDA-Public Use
  Company Number: BR-US-EMD SERONO, INC.-7058964

PATIENT
  Sex: Male

DRUGS (4)
  1. DIAZEPAM [Concomitant]
  2. RETEMIC TDS [Concomitant]
  3. REBIF [Suspect]
     Indication: RELAPSING-REMITTING MULTIPLE SCLEROSIS
     Dates: start: 20011218, end: 20110422
  4. AMANTADINE HCL [Concomitant]

REACTIONS (1)
  - DYSPHEMIA [None]
